FAERS Safety Report 20340133 (Version 1)
Quarter: 2022Q1

REPORT INFORMATION
  Report Type: Spontaneous
  Country: US (occurrence: US)
  Receive Date: 20220117
  Receipt Date: 20220117
  Transmission Date: 20220423
  Serious: Yes (Other)
  Sender: FDA-Public Use
  Company Number: US-drreddys-LIT/USA/22/0145919

PATIENT
  Age: 14 Year
  Sex: Male

DRUGS (42)
  1. SIROLIMUS [Suspect]
     Active Substance: SIROLIMUS
     Indication: Anaphylactic transfusion reaction
     Dosage: STARTING ON DAY PLUS 5 AFTER TRANSPLANT
  2. SIROLIMUS [Suspect]
     Active Substance: SIROLIMUS
     Indication: Cytomegalovirus infection reactivation
  3. SIROLIMUS [Suspect]
     Active Substance: SIROLIMUS
     Indication: Delayed haemolytic transfusion reaction
  4. SIROLIMUS [Suspect]
     Active Substance: SIROLIMUS
     Indication: Autologous haematopoietic stem cell transplant
  5. THIOTEPA [Suspect]
     Active Substance: THIOTEPA
     Indication: Anaphylactic transfusion reaction
     Dosage: DAY -7
  6. THIOTEPA [Suspect]
     Active Substance: THIOTEPA
     Indication: Cytomegalovirus infection reactivation
  7. THIOTEPA [Suspect]
     Active Substance: THIOTEPA
     Indication: Delayed haemolytic transfusion reaction
  8. THIOTEPA [Suspect]
     Active Substance: THIOTEPA
     Indication: Autologous haematopoietic stem cell transplant
  9. HYDROXYUREA [Suspect]
     Active Substance: HYDROXYUREA
     Indication: Anaphylactic transfusion reaction
     Dosage: DAY -70 TO -10
  10. HYDROXYUREA [Suspect]
     Active Substance: HYDROXYUREA
     Indication: Cytomegalovirus infection reactivation
  11. HYDROXYUREA [Suspect]
     Active Substance: HYDROXYUREA
     Indication: Delayed haemolytic transfusion reaction
  12. HYDROXYUREA [Suspect]
     Active Substance: HYDROXYUREA
     Indication: Autologous haematopoietic stem cell transplant
  13. THYMOGLOBULIN [Suspect]
     Active Substance: LAPINE T-LYMPHOCYTE IMMUNE GLOBULIN
     Indication: Anaphylactic transfusion reaction
     Dosage: DAYS -9 TO -7
  14. THYMOGLOBULIN [Suspect]
     Active Substance: LAPINE T-LYMPHOCYTE IMMUNE GLOBULIN
     Indication: Cytomegalovirus infection reactivation
  15. THYMOGLOBULIN [Suspect]
     Active Substance: LAPINE T-LYMPHOCYTE IMMUNE GLOBULIN
     Indication: Delayed haemolytic transfusion reaction
  16. THYMOGLOBULIN [Suspect]
     Active Substance: LAPINE T-LYMPHOCYTE IMMUNE GLOBULIN
     Indication: Autologous haematopoietic stem cell transplant
  17. FLUDARABINE [Suspect]
     Active Substance: FLUDARABINE PHOSPHATE
     Indication: Anaphylactic transfusion reaction
     Dosage: DAYS -6 TO -2
  18. FLUDARABINE [Suspect]
     Active Substance: FLUDARABINE PHOSPHATE
     Indication: Cytomegalovirus infection reactivation
  19. FLUDARABINE [Suspect]
     Active Substance: FLUDARABINE PHOSPHATE
     Indication: Delayed haemolytic transfusion reaction
  20. FLUDARABINE [Suspect]
     Active Substance: FLUDARABINE PHOSPHATE
     Indication: Autologous haematopoietic stem cell transplant
  21. CYCLOPHOSPHAMIDE [Suspect]
     Active Substance: CYCLOPHOSPHAMIDE
     Indication: Anaphylactic transfusion reaction
     Dosage: (DAYS -6 AND -5)
  22. CYCLOPHOSPHAMIDE [Suspect]
     Active Substance: CYCLOPHOSPHAMIDE
     Indication: Cytomegalovirus infection reactivation
     Dosage: DAY PLUS 3 AND PLUS 4 (PTCY)
  23. CYCLOPHOSPHAMIDE [Suspect]
     Active Substance: CYCLOPHOSPHAMIDE
     Indication: Delayed haemolytic transfusion reaction
  24. CYCLOPHOSPHAMIDE [Suspect]
     Active Substance: CYCLOPHOSPHAMIDE
     Indication: Autologous haematopoietic stem cell transplant
  25. MYCOPHENOLATE MOFETIL [Suspect]
     Active Substance: MYCOPHENOLATE MOFETIL
     Indication: Anaphylactic transfusion reaction
     Dosage: STARTING ON DAY 5 AFTER TRANSPLANT.
  26. MYCOPHENOLATE MOFETIL [Suspect]
     Active Substance: MYCOPHENOLATE MOFETIL
     Indication: Cytomegalovirus infection reactivation
  27. MYCOPHENOLATE MOFETIL [Suspect]
     Active Substance: MYCOPHENOLATE MOFETIL
     Indication: Delayed haemolytic transfusion reaction
  28. MYCOPHENOLATE MOFETIL [Suspect]
     Active Substance: MYCOPHENOLATE MOFETIL
     Indication: Autologous haematopoietic stem cell transplant
  29. HYDROCORTISONE [Suspect]
     Active Substance: HYDROCORTISONE
     Indication: Anaphylactic transfusion reaction
     Dosage: THREE DOSES
  30. HYDROCORTISONE [Suspect]
     Active Substance: HYDROCORTISONE
     Indication: Cytomegalovirus infection reactivation
  31. HYDROCORTISONE [Suspect]
     Active Substance: HYDROCORTISONE
     Indication: Delayed haemolytic transfusion reaction
  32. HYDROCORTISONE [Suspect]
     Active Substance: HYDROCORTISONE
     Indication: Autologous haematopoietic stem cell transplant
  33. METHYLPREDNISOLONE [Suspect]
     Active Substance: METHYLPREDNISOLONE
     Indication: Anaphylactic transfusion reaction
  34. METHYLPREDNISOLONE [Suspect]
     Active Substance: METHYLPREDNISOLONE
     Indication: Cytomegalovirus infection reactivation
  35. METHYLPREDNISOLONE [Suspect]
     Active Substance: METHYLPREDNISOLONE
     Indication: Delayed haemolytic transfusion reaction
  36. METHYLPREDNISOLONE [Suspect]
     Active Substance: METHYLPREDNISOLONE
     Indication: Autologous haematopoietic stem cell transplant
  37. ACYCLOVIR [Suspect]
     Active Substance: ACYCLOVIR
     Indication: Antiviral prophylaxis
  38. ACYCLOVIR [Suspect]
     Active Substance: ACYCLOVIR
     Indication: Anaphylactic transfusion reaction
  39. ACYCLOVIR [Suspect]
     Active Substance: ACYCLOVIR
     Indication: Cytomegalovirus infection reactivation
  40. ACYCLOVIR [Suspect]
     Active Substance: ACYCLOVIR
     Indication: Delayed haemolytic transfusion reaction
  41. ACYCLOVIR [Suspect]
     Active Substance: ACYCLOVIR
     Indication: Autologous haematopoietic stem cell transplant
  42. EPINEPHRINE [Concomitant]
     Active Substance: EPINEPHRINE
     Indication: Product used for unknown indication

REACTIONS (2)
  - Transplant failure [Unknown]
  - Drug ineffective [Unknown]
